FAERS Safety Report 23503814 (Version 4)
Quarter: 2024Q3

REPORT INFORMATION
  Report Type: Spontaneous
  Country: IT (occurrence: IT)
  Receive Date: 20240209
  Receipt Date: 20240925
  Transmission Date: 20241016
  Serious: Yes (Other)
  Sender: CELLTRION
  Company Number: IT-CELLTRION INC.-2024IT002877

PATIENT

DRUGS (11)
  1. RITUXIMAB [Suspect]
     Active Substance: RITUXIMAB
     Indication: Focal segmental glomerulosclerosis
     Dosage: 375 MG/M2, SINGLE DOSE, TOTAL/RTX + DARATUMUMAB / DILUTED IN SALINE
  2. RITUXIMAB [Suspect]
     Active Substance: RITUXIMAB
     Dosage: RTX + PEX
  3. DARATUMUMAB [Suspect]
     Active Substance: DARATUMUMAB
     Indication: Focal segmental glomerulosclerosis
     Dosage: 16 MG/KG, SINGLE / INFUSED 15 DAYS AFTER RITUXIMAB / DILUTED IN 1000ML OF SALINE / ADMINISTERED AT 9
  4. BASILIXIMAB [Concomitant]
     Active Substance: BASILIXIMAB
     Dosage: UNK
  5. TACROLIMUS [Concomitant]
     Active Substance: TACROLIMUS
     Indication: Immunosuppressant drug therapy
     Dosage: UNK
  6. MYCOPHENOLATE MOFETIL [Concomitant]
     Active Substance: MYCOPHENOLATE MOFETIL
     Indication: Immunosuppressant drug therapy
     Dosage: 1 G, 2X/DAY
  7. METHYLPREDNISOLONE [Concomitant]
     Active Substance: METHYLPREDNISOLONE
     Indication: Premedication
     Dosage: (2 MG/KG DILUTED IN 100 ML OF NORMAL SALINE IN 30 MINUTES)
     Route: 042
  8. METHYLPREDNISOLONE [Concomitant]
     Active Substance: METHYLPREDNISOLONE
     Dosage: (20MG INFUSED IN 15 ?INTRAVENOUS DILUTED IN 50 ML OF NORMAL SALINE) (AFTER 2H OF INFUSIONOF DARATUMA
     Route: 042
  9. CETIRIZINE [Concomitant]
     Active Substance: CETIRIZINE HYDROCHLORIDE
     Indication: Premedication
     Dosage: 0.2 MG/KG
     Route: 048
  10. CETIRIZINE [Concomitant]
     Active Substance: CETIRIZINE HYDROCHLORIDE
     Dosage: 0.2 MG/KG (AFTER 2H OF INFUSIONOF DARATUMAB)
     Route: 048
  11. ACETAMINOPHEN [Concomitant]
     Active Substance: ACETAMINOPHEN
     Indication: Premedication
     Dosage: 15 MG/KG

REACTIONS (6)
  - Proteinuria [Unknown]
  - Hypoalbuminaemia [Unknown]
  - Drug resistance [Unknown]
  - Drug ineffective for unapproved indication [Unknown]
  - Off label use [Unknown]
  - Drug effective for unapproved indication [Unknown]
